FAERS Safety Report 17131030 (Version 1)
Quarter: 2019Q4

REPORT INFORMATION
  Report Type: Spontaneous
  Country: US (occurrence: US)
  Receive Date: 20191209
  Receipt Date: 20191209
  Transmission Date: 20200122
  Serious: No
  Sender: FDA-Public Use
  Company Number: US-BAUSCH-BL-2019-059154

PATIENT
  Age: 45 Year
  Sex: Female

DRUGS (3)
  1. NU-DERM SYSTEM NORMAL-OILY SKIN TRANSFORMATION [Suspect]
     Active Substance: HYDROQUINONE\OCTINOXATE\ZINC OXIDE
     Indication: SKIN HYPERPIGMENTATION
     Route: 061
     Dates: start: 20191014
  2. TRETINOIN. [Suspect]
     Active Substance: TRETINOIN
     Indication: SKIN HYPERPIGMENTATION
     Route: 061
     Dates: start: 20191014
  3. TRETINOIN. [Suspect]
     Active Substance: TRETINOIN
     Indication: PRODUCT USE IN UNAPPROVED INDICATION

REACTIONS (4)
  - Dermatitis acneiform [Not Recovered/Not Resolved]
  - Skin exfoliation [Not Recovered/Not Resolved]
  - Product use in unapproved indication [Unknown]
  - Erythema [Not Recovered/Not Resolved]

NARRATIVE: CASE EVENT DATE: 20191014
